FAERS Safety Report 19412058 (Version 1)
Quarter: 2021Q2

REPORT INFORMATION
  Report Type: Spontaneous
  Country: US (occurrence: US)
  Receive Date: 20210614
  Receipt Date: 20210614
  Transmission Date: 20210717
  Serious: No
  Sender: FDA-Public Use
  Company Number: US-COVIS PHARMA GMBH-2021COV00016

PATIENT
  Sex: Male
  Weight: 149.66 kg

DRUGS (29)
  1. LANTUS [Concomitant]
     Active Substance: INSULIN GLARGINE
     Dosage: 30 USP UNIT, 2X/DAY
  2. SERTRALINE [Concomitant]
     Active Substance: SERTRALINE HYDROCHLORIDE
     Dosage: 100 MG, 1X/DAY
  3. COLACE [Concomitant]
     Active Substance: DOCUSATE SODIUM
  4. INSPRA [Concomitant]
     Active Substance: EPLERENONE
     Dosage: 3 MG, 1X/DAY
  5. NAPROXEN. [Concomitant]
     Active Substance: NAPROXEN
  6. CALCIUM+COLECALCIFEROL [Concomitant]
     Dosage: UNK, 2X/DAY
  7. ACYCLOVIR. [Concomitant]
     Active Substance: ACYCLOVIR
     Indication: HERPES VIRUS INFECTION
     Dosage: 400 UNK, 1X/DAY
  8. OMEPRAZOLE MAGNESIUM. [Suspect]
     Active Substance: OMEPRAZOLE MAGNESIUM
     Dosage: 20 UNK, 1X/DAY
  9. TERAZOSIN [Concomitant]
     Active Substance: TERAZOSIN HYDROCHLORIDE
     Dosage: 10 MG, 1X/DAY
  10. OLOPATADINE HYDROCHLORIDE. [Concomitant]
     Active Substance: OLOPATADINE HYDROCHLORIDE
  11. IBUPROFEN. [Concomitant]
     Active Substance: IBUPROFEN
  12. EPIPEN [Concomitant]
     Active Substance: EPINEPHRINE
  13. BYDUREON BCISE [Suspect]
     Active Substance: EXENATIDE
     Indication: TYPE 2 DIABETES MELLITUS
     Dosage: 2 MG, 1X/WEEK
     Route: 058
  14. ATORVASTATIN [Concomitant]
     Active Substance: ATORVASTATIN
     Indication: BLOOD CHOLESTEROL
     Dosage: 20 MG, EVERY 48 HOURS
  15. VITAMIN B12 [Concomitant]
     Active Substance: CYANOCOBALAMIN
  16. NOVOLOG [Concomitant]
     Active Substance: INSULIN ASPART
  17. MULTIVITAMINS [Concomitant]
     Active Substance: VITAMINS
  18. MELATONIN [Concomitant]
     Active Substance: MELATONIN
  19. ZOLPIDEM [Concomitant]
     Active Substance: ZOLPIDEM TARTRATE
     Dosage: 10 MG, 1X/DAY
  20. METOPROLOL. [Suspect]
     Active Substance: METOPROLOL
     Dosage: UNK
  21. METFORMIN [Concomitant]
     Active Substance: METFORMIN HYDROCHLORIDE
  22. JARDIANCE [Concomitant]
     Active Substance: EMPAGLIFLOZIN
  23. LOSARTAN. [Concomitant]
     Active Substance: LOSARTAN
  24. NARCODORM [Concomitant]
     Active Substance: ENIBOMAL SODIUM
  25. LASIX [Concomitant]
     Active Substance: FUROSEMIDE
     Dosage: 20 UNK, EVERY 48 HOURS
  26. ASPIRIN. [Concomitant]
     Active Substance: ASPIRIN
     Dosage: 81 MG, 1X/DAY
  27. BYDUREON [Suspect]
     Active Substance: EXENATIDE
     Dosage: UNK
  28. HYDRALAZINE [Concomitant]
     Active Substance: HYDRALAZINE HYDROCHLORIDE
  29. GABAPENTIN. [Concomitant]
     Active Substance: GABAPENTIN
     Dosage: 300 MG, 2X/DAY

REACTIONS (2)
  - Lacrimation increased [Unknown]
  - Dry eye [Unknown]
